FAERS Safety Report 4315855-9 (Version None)
Quarter: 2004Q1

REPORT INFORMATION
  Report Type: 
  Country: None (occurrence: None)
  Receive Date: 20040310
  Receipt Date: 20040223
  Transmission Date: 20041129
  Serious: Yes (Death)
  Sender: FDA-Public Use
  Company Number: T04-GER-00858-01

PATIENT
  Age: 64 Year
  Sex: Female

DRUGS (3)
  1. ESCITALOPRAM OXALATE [Suspect]
     Indication: DEPRESSION
     Dosage: 5 MG QD PO
     Route: 048
     Dates: start: 20031121, end: 20031121
  2. REMERGIL (MIRTAZAPINE) [Concomitant]
  3. HALDOL DECANOATE (HALOPERIDOL DECANOATE) [Concomitant]

REACTIONS (4)
  - COMPLETED SUICIDE [None]
  - CONDITION AGGRAVATED [None]
  - DEPRESSION [None]
  - RESTLESSNESS [None]
